FAERS Safety Report 23821054 (Version 1)
Quarter: 2024Q2

REPORT INFORMATION
  Report Type: Spontaneous
  Country: CO (occurrence: CO)
  Receive Date: 20240506
  Receipt Date: 20240506
  Transmission Date: 20240716
  Serious: Yes (Hospitalization)
  Sender: FDA-Public Use
  Company Number: CO-RECORDATI RARE DISEASE INC.-2023003530

PATIENT

DRUGS (3)
  1. CARBAGLU [Suspect]
     Active Substance: CARGLUMIC ACID
     Indication: Propionic acidaemia
     Dosage: 200 MILLIGRAM, Q8H
     Route: 048
     Dates: start: 20221102
  2. LEVOCARNITINE [Concomitant]
     Active Substance: LEVOCARNITINE
     Indication: Product used for unknown indication
     Dosage: 4.5 MILLILITER, Q8H
     Route: 048
  3. BIOTIN [Concomitant]
     Active Substance: BIOTIN
     Indication: Product used for unknown indication
     Dosage: 200 MILLIGRAM, Q8H
     Route: 048

REACTIONS (1)
  - Metabolic disorder [Recovering/Resolving]

NARRATIVE: CASE EVENT DATE: 20230602
